FAERS Safety Report 10192457 (Version 1)
Quarter: 2014Q2

REPORT INFORMATION
  Report Type: Spontaneous
  Country: US (occurrence: US)
  Receive Date: 20140523
  Receipt Date: 20140523
  Transmission Date: 20141212
  Serious: Yes (Life-Threatening, Hospitalization, Other)
  Sender: FDA-Public Use
  Company Number: US-ACTAVIS-2014-10964

PATIENT
  Age: 51 Year
  Sex: Male
  Weight: 85 kg

DRUGS (4)
  1. LISINOPRIL (WATSON LABORATORIES) [Suspect]
     Indication: HYPERTENSION
     Dosage: 27X10MG TABLETS OVER A PERIOD OF 3 OR FEWER DAYS (3.18 MG/KG BODY WEIGHT)
     Route: 065
  2. LISINOPRIL (WATSON LABORATORIES) [Suspect]
     Indication: OVERDOSE
  3. HYDROCODONE BITARTRATE AND ACETAMINOPHEN [Concomitant]
     Indication: PRODUCT USED FOR UNKNOWN INDICATION
     Dosage: 5/325 MG
     Route: 065
  4. ALPRAZOLAM [Concomitant]
     Indication: PRODUCT USED FOR UNKNOWN INDICATION
     Dosage: 0.5 MG, UNKNOWN
     Route: 065

REACTIONS (10)
  - Renal failure acute [Recovering/Resolving]
  - Azotaemia [Recovering/Resolving]
  - Uraemic encephalopathy [Recovered/Resolved]
  - Metabolic acidosis [Recovered/Resolved]
  - Rhabdomyolysis [Unknown]
  - Hyperkalaemia [Recovered/Resolved]
  - Electrocardiogram T wave amplitude increased [Unknown]
  - Electrocardiogram P wave abnormal [Unknown]
  - Electrocardiogram QRS complex prolonged [Unknown]
  - Overdose [Unknown]
